FAERS Safety Report 17666678 (Version 1)
Quarter: 2020Q2

REPORT INFORMATION
  Report Type: Spontaneous
  Country: SE (occurrence: SE)
  Receive Date: 20200414
  Receipt Date: 20200414
  Transmission Date: 20200713
  Serious: Yes (Disabling)
  Sender: FDA-Public Use
  Company Number: SE-UCBSA-2020015155

PATIENT
  Age: 17 Year
  Sex: Male

DRUGS (3)
  1. TOPIMAX [TOPIRAMATE] [Concomitant]
     Active Substance: TOPIRAMATE
     Indication: PRODUCT USED FOR UNKNOWN INDICATION
  2. TRILEPTAL [Concomitant]
     Active Substance: OXCARBAZEPINE
     Indication: PRODUCT USED FOR UNKNOWN INDICATION
  3. VIMPAT [Suspect]
     Active Substance: LACOSAMIDE
     Indication: EPILEPSY
     Dosage: 50 (UNSPECIFIED UNITS) 50 MORNING 100 AFTERNOON AND 50 NIGHT, 3X/DAY (TID)
     Route: 048
     Dates: start: 20190627, end: 20191104

REACTIONS (3)
  - Fatigue [Recovered/Resolved with Sequelae]
  - Malaise [Recovered/Resolved with Sequelae]
  - Off label use [Unknown]

NARRATIVE: CASE EVENT DATE: 20190627
